FAERS Safety Report 21930945 (Version 1)
Quarter: 2023Q1

REPORT INFORMATION
  Report Type: Spontaneous
  Country: US (occurrence: None)
  Receive Date: 20230130
  Receipt Date: 20230130
  Transmission Date: 20230418
  Serious: Yes (Hospitalization)
  Sender: FDA-Public Use
  Company Number: None

PATIENT
  Age: 57 Year
  Sex: Male

DRUGS (1)
  1. ABIRATERONE [Suspect]
     Active Substance: ABIRATERONE
     Dosage: FREQUENCY : DAILY;?
     Route: 048
     Dates: end: 202212

REACTIONS (7)
  - Fall [None]
  - Therapy cessation [None]
  - Asthenia [None]
  - Vomiting [None]
  - Nausea [None]
  - Neuropathy peripheral [None]
  - Malaise [None]

NARRATIVE: CASE EVENT DATE: 20230130
